FAERS Safety Report 17006358 (Version 3)
Quarter: 2020Q2

REPORT INFORMATION
  Report Type: Spontaneous
  Country: US (occurrence: US)
  Receive Date: 20191107
  Receipt Date: 20200601
  Transmission Date: 20200713
  Serious: Yes (Hospitalization, Disabling, Other)
  Sender: FDA-Public Use
  Company Number: US-NOVOPROD-694155

PATIENT
  Age: 84 Year
  Sex: Female

DRUGS (1)
  1. NOVOLOG [Suspect]
     Active Substance: INSULIN ASPART
     Indication: DIABETES MELLITUS INADEQUATE CONTROL
     Dosage: 18 IU, QD(7 U AT BREAKFAST, 5 U AT LUNCH, AND 6 U AT SUPPER)
     Route: 058

REACTIONS (8)
  - Blood glucose increased [Not Recovered/Not Resolved]
  - Product quality issue [Unknown]
  - Blood glucose fluctuation [Not Recovered/Not Resolved]
  - Fall [Unknown]
  - Walking aid user [Not Recovered/Not Resolved]
  - Device malfunction [Unknown]
  - Hepatic function abnormal [Unknown]
  - Pancreatic disorder [Unknown]
